FAERS Safety Report 7528253-1 (Version None)
Quarter: 2011Q2

REPORT INFORMATION
  Report Type: 
  Country: None (occurrence: None)
  Receive Date: 20110607
  Receipt Date: 20101021
  Transmission Date: 20111010
  Serious: No
  Sender: FDA-Public Use
  Company Number: US-ASTRAZENECA-2010SE47952

PATIENT
  Age: 61 Year
  Sex: Female

DRUGS (1)
  1. PRILOSEC [Suspect]
     Route: 048

REACTIONS (6)
  - CHEST PAIN [None]
  - POLYP [None]
  - DYSPEPSIA [None]
  - DRUG INEFFECTIVE [None]
  - LARYNGITIS [None]
  - REGURGITATION [None]
